FAERS Safety Report 15738963 (Version 2)
Quarter: 2019Q2

REPORT INFORMATION
  Report Type: Spontaneous
  Country: US (occurrence: US)
  Receive Date: 20181219
  Receipt Date: 20190517
  Transmission Date: 20190711
  Serious: Yes (Other)
  Sender: FDA-Public Use
  Company Number: US-ASTRAZENECA-2018SF62428

PATIENT
  Sex: Male
  Weight: 99.3 kg

DRUGS (18)
  1. METOPROLOL. [Concomitant]
     Active Substance: METOPROLOL
  2. PHENTERMINE. [Concomitant]
     Active Substance: PHENTERMINE
  3. CARVEDILOL. [Concomitant]
     Active Substance: CARVEDILOL
  4. PROBENECID. [Concomitant]
     Active Substance: PROBENECID
  5. DILTIAZEM. [Concomitant]
     Active Substance: DILTIAZEM
  6. PRAVASTATIN. [Concomitant]
     Active Substance: PRAVASTATIN
  7. TAMSULOSIN [Concomitant]
     Active Substance: TAMSULOSIN
  8. CALCITRIOL. [Concomitant]
     Active Substance: CALCITRIOL
  9. PANTOPRAZOLE [Suspect]
     Active Substance: PANTOPRAZOLE
     Dosage: 40 MG DAILY
     Route: 065
     Dates: start: 200903, end: 201001
  10. RENVELA [Concomitant]
     Active Substance: SEVELAMER CARBONATE
  11. HYDROXYUREA. [Concomitant]
     Active Substance: HYDROXYUREA
  12. NEXIUM [Suspect]
     Active Substance: ESOMEPRAZOLE MAGNESIUM
     Dosage: GENERIC
     Route: 048
     Dates: start: 201602, end: 201603
  13. WARFARIN [Concomitant]
     Active Substance: WARFARIN
  14. AMLODIPINE [Concomitant]
     Active Substance: AMLODIPINE BESYLATE
  15. NEXIUM [Suspect]
     Active Substance: ESOMEPRAZOLE MAGNESIUM
     Route: 048
     Dates: start: 2010, end: 2015
  16. ALLOPURINOL. [Concomitant]
     Active Substance: ALLOPURINOL
  17. CIALIS [Concomitant]
     Active Substance: TADALAFIL
  18. ENDOCET [Concomitant]
     Active Substance: ACETAMINOPHEN\OXYCODONE HYDROCHLORIDE

REACTIONS (2)
  - Chronic kidney disease [Not Recovered/Not Resolved]
  - Tubulointerstitial nephritis [Unknown]
